FAERS Safety Report 6443551-0 (Version None)
Quarter: 2009Q4

REPORT INFORMATION
  Report Type: 
  Country: None (occurrence: None)
  Receive Date: 20091112
  Receipt Date: 20091027
  Transmission Date: 20100525
  Serious: Yes (Death)
  Sender: FDA-Public Use
  Company Number: 2009002589

PATIENT
  Age: 82 Year
  Sex: Female

DRUGS (10)
  1. ERLOTINIB HYDROCHLORIDE [Suspect]
     Indication: NON-SMALL CELL LUNG CANCER
     Dosage: 150 MG,QD,ORAL
     Route: 048
     Dates: start: 20090808, end: 20090815
  2. DIGOXIN [Concomitant]
  3. VERAPAMIL HYDROCHLORIDE [Concomitant]
  4. GASTER D [Concomitant]
  5. LIPITOR [Concomitant]
  6. EBASTEL (EBASTINE) [Concomitant]
  7. ENALAPRIL MALEATE [Concomitant]
  8. AMLODIPINE BESYLATE [Concomitant]
  9. LASIX [Concomitant]
  10. BONALON [Concomitant]

REACTIONS (14)
  - ALTERED STATE OF CONSCIOUSNESS [None]
  - BLOOD CULTURE POSITIVE [None]
  - BLOOD PRESSURE DECREASED [None]
  - CIRCULATORY COLLAPSE [None]
  - CULTURE STOOL POSITIVE [None]
  - DEHYDRATION [None]
  - DIARRHOEA [None]
  - DISEASE PROGRESSION [None]
  - ENTERITIS [None]
  - HAEMATOCHEZIA [None]
  - LUNG ADENOCARCINOMA [None]
  - NO THERAPEUTIC RESPONSE [None]
  - RENAL FAILURE ACUTE [None]
  - STAPHYLOCOCCAL INFECTION [None]
